FAERS Safety Report 9664717 (Version 1)
Quarter: 2013Q4

REPORT INFORMATION
  Report Type: Spontaneous
  Country: GB (occurrence: None)
  Receive Date: 20131031
  Receipt Date: 20131031
  Transmission Date: 20140711
  Serious: Yes (Hospitalization)
  Sender: FDA-Public Use
  Company Number: FK201302472

PATIENT
  Age: 51 Year
  Sex: 0

DRUGS (6)
  1. LEVOFLOXACIN [Suspect]
     Indication: PNEUMONIA
     Route: 041
     Dates: start: 20110519, end: 20110520
  2. PIPERACILLIN/TAZOBACTAM [Suspect]
     Indication: PNEUMONIA
     Route: 041
     Dates: start: 20110607
  3. BENZYLPENICILLIN [Suspect]
     Indication: PNEUMONIA
     Route: 041
     Dates: start: 20110518, end: 20110520
  4. CLARITHROMYCIN [Suspect]
     Indication: PNEUMONIA
     Route: 041
     Dates: start: 20110519, end: 20110525
  5. CO-AMOXICLAV [Suspect]
     Indication: PNEUMONIA
     Route: 041
     Dates: start: 20110521, end: 20110525
  6. LEVOFLOXACIN [Suspect]
     Indication: PNEUMONIA
     Route: 048
     Dates: start: 20110526, end: 20110602

REACTIONS (2)
  - Respiratory arrest [None]
  - Clostridium difficile colitis [None]
